FAERS Safety Report 8261144-X (Version None)
Quarter: 2012Q2

REPORT INFORMATION
  Report Type: 
  Country: None (occurrence: None)
  Receive Date: 20120405
  Receipt Date: 20120327
  Transmission Date: 20120825
  Serious: Yes (Other)
  Sender: FDA-Public Use
  Company Number: IT-JNJFOC-20120210588

PATIENT
  Age: 39 Year
  Sex: Female

DRUGS (4)
  1. HALDOL [Suspect]
     Route: 048
  2. ACETAMINOPHEN [Suspect]
     Indication: SELF INJURIOUS BEHAVIOUR
     Route: 048
     Dates: start: 20120219, end: 20120219
  3. HALDOL [Suspect]
     Indication: SELF INJURIOUS BEHAVIOUR
     Route: 048
     Dates: start: 20120219, end: 20120219
  4. ABILIFY [Suspect]
     Indication: SELF INJURIOUS BEHAVIOUR
     Route: 048
     Dates: start: 20120219, end: 20120219

REACTIONS (3)
  - MULTIPLE DRUG OVERDOSE INTENTIONAL [None]
  - SELF INJURIOUS BEHAVIOUR [None]
  - MATERNAL EXPOSURE DURING PREGNANCY [None]
